FAERS Safety Report 16614920 (Version 1)
Quarter: 2019Q3

REPORT INFORMATION
  Report Type: Report from Study
  Country: None (occurrence: FR)
  Receive Date: 20190723
  Receipt Date: 20190723
  Transmission Date: 20191004
  Serious: Yes (Other)
  Sender: FDA-Public Use
  Company Number: FR-ABBVIE-19P-056-2860427-00

PATIENT
  Age: 59 Year
  Sex: Male
  Weight: 79 kg

DRUGS (3)
  1. VENCLYXTO [Suspect]
     Active Substance: VENETOCLAX
     Indication: CHRONIC LYMPHOCYTIC LEUKAEMIA
     Dosage: DURING 1 WEEK
     Route: 048
     Dates: start: 20161205, end: 201612
  2. VENCLYXTO [Suspect]
     Active Substance: VENETOCLAX
     Dosage: DURING 1 WEEK
     Route: 048
     Dates: start: 201901, end: 2019
  3. VENCLYXTO [Suspect]
     Active Substance: VENETOCLAX
     Route: 048
     Dates: start: 20190702

REACTIONS (5)
  - Bronchitis [Recovered/Resolved]
  - Insomnia [Unknown]
  - Lymphocytosis [Unknown]
  - Myalgia [Unknown]
  - Asthenia [Unknown]

NARRATIVE: CASE EVENT DATE: 20190102
